FAERS Safety Report 4886182-6 (Version None)
Quarter: 2006Q1

REPORT INFORMATION
  Report Type: 
  Country: None (occurrence: None)
  Receive Date: 20060120
  Receipt Date: 20060113
  Transmission Date: 20060701
  Serious: Yes (Other)
  Sender: FDA-Public Use
  Company Number: ES-GLAXOSMITHKLINE-B0406884A

PATIENT
  Age: 72 Year
  Sex: Female

DRUGS (8)
  1. FONDAPARINUX SODIUM [Suspect]
     Dosage: 2.5MG PER DAY
     Route: 058
     Dates: start: 20031210, end: 20031213
  2. ASPIRIN [Concomitant]
  3. CLOPIDOGREL [Concomitant]
  4. NITRATES [Concomitant]
  5. STATINS [Concomitant]
  6. DIURETICS [Concomitant]
  7. ACE INHIBITOR [Concomitant]
  8. DIGITALE [Concomitant]

REACTIONS (1)
  - HAEMATURIA [None]
